FAERS Safety Report 15677428 (Version 2)
Quarter: 2020Q4

REPORT INFORMATION
  Report Type: Report from Study
  Country: FR (occurrence: FR)
  Receive Date: 20181130
  Receipt Date: 20201029
  Transmission Date: 20210113
  Serious: Yes (Other)
  Sender: FDA-Public Use
  Company Number: FR-PFIZER INC-2018491612

PATIENT
  Weight: 14.5 kg

DRUGS (9)
  1. TAZOCILLINE [Concomitant]
     Active Substance: PIPERACILLIN SODIUM\TAZOBACTAM SODIUM
     Dosage: UNK
     Dates: start: 20181030, end: 20181031
  2. ACUPAN [Concomitant]
     Active Substance: NEFOPAM HYDROCHLORIDE
     Dosage: UNK
     Dates: start: 20181028, end: 20181102
  3. AMBISOME [Concomitant]
     Active Substance: AMPHOTERICIN B
     Dosage: UNK
     Dates: start: 20181013, end: 20181031
  4. GEMTUZUMAB OZOGAMICIN [Suspect]
     Active Substance: GEMTUZUMAB OZOGAMICIN
     Indication: ACUTE MYELOID LEUKAEMIA
     Dosage: 3.0 MG/M2, 2X/DAY
     Route: 042
     Dates: start: 20181001, end: 20181006
  5. MITOXANTRONE [Suspect]
     Active Substance: MITOXANTRONE HYDROCHLORIDE
     Indication: ACUTE MYELOID LEUKAEMIA
     Dosage: 12 MG/M2, 2X/DAY
     Route: 042
     Dates: start: 20180928, end: 20181001
  6. MORPHINE [Concomitant]
     Active Substance: MORPHINE
     Dosage: UNK UNK, 1X/DAY
     Route: 040
     Dates: start: 20181028, end: 20181101
  7. CYTARABINE. [Suspect]
     Active Substance: CYTARABINE
     Indication: ACUTE MYELOID LEUKAEMIA
     Dosage: 100 MG, 3X/DAY
     Route: 042
     Dates: start: 20180926, end: 20181007
  8. SPASFON [Concomitant]
     Dosage: UNK
     Dates: start: 20181028, end: 20181102
  9. VANCOMYCINE [Concomitant]
     Active Substance: VANCOMYCIN
     Dosage: UNK
     Dates: start: 20181012, end: 20181030

REACTIONS (1)
  - Stomatitis [Recovered/Resolved]

NARRATIVE: CASE EVENT DATE: 20181026
